FAERS Safety Report 4846945-X (Version None)
Quarter: 2005Q4

REPORT INFORMATION
  Report Type: 
  Country: None (occurrence: None)
  Receive Date: 20051202
  Receipt Date: 20051121
  Transmission Date: 20060501
  Serious: Yes (Hospitalization)
  Sender: FDA-Public Use
  Company Number: HQWYE586717NOV05

PATIENT
  Age: 41 Year
  Sex: Female

DRUGS (13)
  1. RAPAMUNE [Suspect]
     Indication: PROPHYLAXIS AGAINST TRANSPLANT REJECTION
     Dosage: 5 MG 1X PER 1 DAY, ORAL ; 20 MG LOADING DOSE; FOLLOWED BY AN UNKNOWN DOSE, ORAL
     Route: 048
     Dates: start: 20051104, end: 20051116
  2. RAPAMUNE [Suspect]
     Indication: PROPHYLAXIS AGAINST TRANSPLANT REJECTION
     Dosage: 5 MG 1X PER 1 DAY, ORAL ; 20 MG LOADING DOSE; FOLLOWED BY AN UNKNOWN DOSE, ORAL
     Route: 048
     Dates: start: 20051129
  3. NIFEDIPINE [Concomitant]
  4. HYDRALAZINE HCL [Concomitant]
  5. RANITIDINE [Concomitant]
  6. ACYCLOVIR [Concomitant]
  7. NISTATIN (NYSTATIN) [Concomitant]
  8. CALCIUM CARBONATE (CALCIUM CARBONATE) [Concomitant]
  9. MYCOPHENOLATE MOFETIL (MYCOPHENOLATE MOFETIL) [Concomitant]
  10. INSULIN [Concomitant]
  11. FUROSEMIDE [Concomitant]
  12. PREDNISONE [Concomitant]
  13. SODIUM BICARBONATE IN PLASTIC CONTAINER [Concomitant]

REACTIONS (7)
  - COMPLICATIONS OF TRANSPLANTED KIDNEY [None]
  - DRUG INEFFECTIVE [None]
  - DRUG RESISTANCE [None]
  - HAEMODIALYSIS [None]
  - KIDNEY TRANSPLANT REJECTION [None]
  - LEUKOPENIA [None]
  - URINARY TRACT INFECTION [None]
